FAERS Safety Report 12217238 (Version 1)
Quarter: 2016Q1

REPORT INFORMATION
  Report Type: Spontaneous
  Country: US (occurrence: None)
  Receive Date: 20160328
  Receipt Date: 20160328
  Transmission Date: 20160526
  Serious: Yes (Other)
  Sender: FDA-Public Use
  Company Number: None

PATIENT
  Age: 56 Year
  Sex: Female
  Weight: 77.11 kg

DRUGS (5)
  1. LOVASTATIN. [Concomitant]
     Active Substance: LOVASTATIN
  2. TRAMADOL, 50 MG VIRTUS PHARMACEUTICALS [Suspect]
     Active Substance: TRAMADOL HYDROCHLORIDE
     Indication: TOOTH ABSCESS
     Dosage: 1 TABLET(S) EVERY 8 HOURS TAKEN BY MOUTH
     Route: 048
     Dates: start: 20160325, end: 20160326
  3. TRAMADOL, 50 MG VIRTUS PHARMACEUTICALS [Suspect]
     Active Substance: TRAMADOL HYDROCHLORIDE
     Indication: ENDODONTIC PROCEDURE
     Dosage: 1 TABLET(S) EVERY 8 HOURS TAKEN BY MOUTH
     Route: 048
     Dates: start: 20160325, end: 20160326
  4. AMOXICILLIN. [Concomitant]
     Active Substance: AMOXICILLIN
  5. VITAMIN D [Concomitant]
     Active Substance: CHOLECALCIFEROL

REACTIONS (7)
  - Hypersomnia [None]
  - Diarrhoea [None]
  - Loss of consciousness [None]
  - Headache [None]
  - Vomiting [None]
  - Malaise [None]
  - Serotonin syndrome [None]

NARRATIVE: CASE EVENT DATE: 20160326
